FAERS Safety Report 9134767 (Version 2)
Quarter: 2013Q1

REPORT INFORMATION
  Report Type: Spontaneous
  Country: US (occurrence: US)
  Receive Date: 20130304
  Receipt Date: 20130321
  Transmission Date: 20140127
  Serious: No
  Sender: FDA-Public Use
  Company Number: US-PFIZER INC-2013073619

PATIENT
  Sex: 0

DRUGS (6)
  1. DEXAMETHASONE SODIUM PHOSPHATE [Suspect]
     Indication: NAUSEA
     Dosage: UNK
     Route: 042
     Dates: start: 20130227, end: 20130227
  2. DEXAMETHASONE SODIUM PHOSPHATE [Suspect]
     Indication: VOMITING
  3. ZOFRAN [Suspect]
     Indication: NAUSEA
     Dosage: UNK
     Dates: start: 20130227, end: 20130227
  4. ZOFRAN [Suspect]
     Indication: VOMITING
  5. SODIUM CHLORIDE INJECTION [Suspect]
     Indication: NAUSEA
     Dosage: 9 %, UNK
  6. SODIUM CHLORIDE INJECTION [Suspect]
     Indication: VOMITING

REACTIONS (2)
  - Chest pain [Unknown]
  - Chest discomfort [Unknown]
